FAERS Safety Report 12720620 (Version 1)
Quarter: 2016Q3

REPORT INFORMATION
  Report Type: Not Available
  Country: GB (occurrence: GB)
  Receive Date: 20160907
  Receipt Date: 20160907
  Transmission Date: 20161109
  Serious: Yes (Other)
  Sender: FDA-Public Use
  Company Number: GB-SYNTHON BV-NL01PV16_41730

PATIENT
  Age: 69 Year
  Sex: Male

DRUGS (3)
  1. BIMATOPROST. [Concomitant]
     Active Substance: BIMATOPROST
     Dosage: UNK
  2. DIFFUNDOX [Suspect]
     Active Substance: TAMSULOSIN HYDROCHLORIDE
     Indication: BENIGN PROSTATIC HYPERPLASIA
     Dosage: 400 ?G, DAILY
     Route: 048
     Dates: start: 20160703, end: 20160711
  3. RAMIPRIL. [Concomitant]
     Active Substance: RAMIPRIL
     Dosage: UNK

REACTIONS (4)
  - Pruritus [Recovered/Resolved]
  - Pollakiuria [Recovered/Resolved]
  - Urticaria [Recovered/Resolved]
  - Retrograde ejaculation [Recovered/Resolved]

NARRATIVE: CASE EVENT DATE: 20160705
